FAERS Safety Report 6083487-0 (Version None)
Quarter: 2009Q1

REPORT INFORMATION
  Report Type: 
  Country: None (occurrence: None)
  Receive Date: 20090213
  Receipt Date: 20090213
  Transmission Date: 20090719
  Serious: Yes (Other)
  Sender: FDA-Public Use
  Company Number: None

PATIENT

DRUGS (2)
  1. ROCURONIUM BROMIDE [Suspect]
     Indication: SURGERY
     Dates: start: 20090201, end: 20090212
  2. ROCURONIUM BROMIDE [Suspect]
     Indication: SURGERY
     Dates: start: 20090212, end: 20090212

REACTIONS (2)
  - DRUG EFFECT DECREASED [None]
  - PRODUCT QUALITY ISSUE [None]
